FAERS Safety Report 6270244-5 (Version None)
Quarter: 2009Q3

REPORT INFORMATION
  Report Type: 
  Country: None (occurrence: None)
  Receive Date: 20090716
  Receipt Date: 20090519
  Transmission Date: 20100115
  Serious: No
  Sender: FDA-Public Use
  Company Number: US-BAYER-200922991NA

PATIENT
  Age: 43 Year
  Sex: Female
  Weight: 95 kg

DRUGS (1)
  1. MAGNEVIST [Suspect]
     Indication: NUCLEAR MAGNETIC RESONANCE IMAGING
     Dosage: TOTAL DAILY DOSE: 2 ML  UNIT DOSE: 15 ML
     Route: 042
     Dates: start: 20090519, end: 20090519

REACTIONS (1)
  - THROAT TIGHTNESS [None]
